FAERS Safety Report 6043964-5 (Version None)
Quarter: 2009Q1

REPORT INFORMATION
  Report Type: 
  Country: None (occurrence: None)
  Receive Date: 20090120
  Receipt Date: 20090112
  Transmission Date: 20090719
  Serious: Yes (Life-Threatening, Hospitalization, Other)
  Sender: FDA-Public Use
  Company Number: GB-PFIZER INC-2009150451

PATIENT

DRUGS (5)
  1. CAMPTOSAR [Suspect]
     Indication: HEPATIC NEOPLASM MALIGNANT
     Dosage: 270 MG, EVERY 14 DAYS
     Route: 042
     Dates: start: 20081222
  2. FLUOROURACIL [Concomitant]
     Indication: HEPATIC NEOPLASM MALIGNANT
     Dosage: 600 MG
     Route: 042
     Dates: start: 20081224
  3. ENOXAPARIN SODIUM [Concomitant]
     Indication: DEEP VEIN THROMBOSIS
     Dosage: 150 MG, UNK
     Route: 058
     Dates: start: 20060601
  4. ENOXAPARIN SODIUM [Concomitant]
     Indication: PULMONARY EMBOLISM
  5. CETUXIMAB [Concomitant]
     Indication: HEPATIC NEOPLASM MALIGNANT
     Dosage: UNK
     Route: 042
     Dates: start: 20081224

REACTIONS (3)
  - CONVULSION [None]
  - ENCEPHALOPATHY [None]
  - HEADACHE [None]
